FAERS Safety Report 4853359-5 (Version None)
Quarter: 2005Q4

REPORT INFORMATION
  Report Type: 
  Country: None (occurrence: None)
  Receive Date: 20051214
  Receipt Date: 20051201
  Transmission Date: 20060501
  Serious: Yes (Other)
  Sender: FDA-Public Use
  Company Number: PHBS2005HU18106

PATIENT
  Age: 62 Year
  Sex: Female
  Weight: 68 kg

DRUGS (1)
  1. GLEEVEC [Suspect]
     Indication: CHRONIC MYELOID LEUKAEMIA
     Dosage: 400 MG/DAY
     Dates: start: 20030925

REACTIONS (12)
  - ARTERIOSCLEROTIC RETINOPATHY [None]
  - CATARACT [None]
  - CONJUNCTIVAL OEDEMA [None]
  - EYELID OEDEMA [None]
  - HEADACHE [None]
  - HYPERMETROPIA [None]
  - MACULAR DEGENERATION [None]
  - NAUSEA [None]
  - OPTIC NEUROPATHY [None]
  - POLYNEUROPATHY [None]
  - PRESBYOPIA [None]
  - VISION BLURRED [None]
